FAERS Safety Report 6340822-3 (Version None)
Quarter: 2009Q3

REPORT INFORMATION
  Report Type: 
  Country: None (occurrence: None)
  Receive Date: 20090904
  Receipt Date: 20090826
  Transmission Date: 20100115
  Serious: Yes (Disabling, Other)
  Sender: FDA-Public Use
  Company Number: PHHY2009JP13442

PATIENT
  Sex: Female

DRUGS (7)
  1. AMN107 AMN+CAP [Suspect]
     Indication: CHRONIC MYELOID LEUKAEMIA
     Dosage: 800 MG DAILY
     Route: 048
     Dates: start: 20090401, end: 20090401
  2. AMN107 AMN+CAP [Suspect]
     Dosage: 400 MG DAILY
     Route: 048
     Dates: start: 20090403, end: 20090403
  3. ZANTAC [Suspect]
     Indication: GASTRITIS
     Dosage: 150 MG/DAY
     Route: 048
     Dates: start: 20070731
  4. GLEEVEC [Concomitant]
     Indication: CHRONIC MYELOID LEUKAEMIA
     Dosage: 400 MG/DAY
     Route: 048
  5. GLEEVEC [Concomitant]
     Dosage: 300 MG/DAY
     Route: 048
     Dates: end: 20090331
  6. SUMIFERON [Concomitant]
     Indication: CHRONIC MYELOID LEUKAEMIA
     Dosage: 6 MIU
     Route: 058
     Dates: start: 19980414, end: 20011220
  7. HYDREA [Concomitant]
     Indication: CHRONIC MYELOID LEUKAEMIA
     Dosage: 500 MG/DAY
     Route: 048
     Dates: start: 19980608, end: 20011220

REACTIONS (9)
  - ALANINE AMINOTRANSFERASE INCREASED [None]
  - ASPARTATE AMINOTRANSFERASE INCREASED [None]
  - BLOOD GLUCOSE INCREASED [None]
  - BLOOD LACTATE DEHYDROGENASE INCREASED [None]
  - HEADACHE [None]
  - HEPATIC FUNCTION ABNORMAL [None]
  - HYPERBILIRUBINAEMIA [None]
  - JAUNDICE [None]
  - VOMITING [None]
